FAERS Safety Report 14303323 (Version 1)
Quarter: 2017Q4

REPORT INFORMATION
  Report Type: Spontaneous
  Country: NO (occurrence: NO)
  Receive Date: 20171219
  Receipt Date: 20171219
  Transmission Date: 20180321
  Serious: Yes (Life-Threatening, Hospitalization, Disabling, Other)
  Sender: FDA-Public Use
  Company Number: NO-OTSUKA-2015_007284

PATIENT

DRUGS (3)
  1. ZYPREXA [Suspect]
     Active Substance: OLANZAPINE
     Indication: SCHIZOPHRENIA
     Dosage: UNK
     Route: 065
     Dates: start: 2006
  2. ARIPIPRAZOLE. [Suspect]
     Active Substance: ARIPIPRAZOLE
     Indication: SCHIZOPHRENIA
     Dosage: 30 MG, QD
     Route: 065
     Dates: start: 2006, end: 201409
  3. OLANZAPINE. [Suspect]
     Active Substance: OLANZAPINE
     Indication: SCHIZOPHRENIA
     Dosage: UNK
     Route: 065
     Dates: start: 2006

REACTIONS (7)
  - Indifference [Recovering/Resolving]
  - Coronary artery bypass [Recovered/Resolved with Sequelae]
  - Diabetes mellitus inadequate control [Unknown]
  - Osteomyelitis [Unknown]
  - Mental impairment [Recovered/Resolved with Sequelae]
  - Coronary artery surgery [Recovered/Resolved with Sequelae]
  - Limb operation [Unknown]

NARRATIVE: CASE EVENT DATE: 2000
